FAERS Safety Report 10023174 (Version 4)
Quarter: 2014Q2

REPORT INFORMATION
  Report Type: Spontaneous
  Country: JP (occurrence: JP)
  Receive Date: 20140320
  Receipt Date: 20140429
  Transmission Date: 20141212
  Serious: Yes (Hospitalization, Other)
  Sender: FDA-Public Use
  Company Number: JP-PFIZER INC-2014049574

PATIENT
  Age: 49 Year
  Sex: Female
  Weight: 44 kg

DRUGS (8)
  1. AZULFIDINE EN [Suspect]
     Dosage: 500 MG, 1X/DAY
     Route: 048
     Dates: start: 20140207, end: 20140218
  2. LYRICA [Concomitant]
     Indication: NEURALGIA
     Dosage: 75 MG, 2X/DAY
     Route: 048
     Dates: start: 20140108
  3. RISEDRONATE SODIUM [Concomitant]
     Dosage: 2.5 MG, 1X/DAY
     Route: 048
     Dates: start: 20131220
  4. PREDNISOLON [Concomitant]
     Indication: RHEUMATOID ARTHRITIS
     Dosage: 1 MG, 1X/DAY
     Route: 048
     Dates: end: 20140214
  5. LANSOPRAZOLE [Concomitant]
     Indication: PROPHYLAXIS AGAINST GASTROINTESTINAL ULCER
     Dosage: 15 MG, 1X/DAY
     Route: 048
  6. AMLODIPINE BESILATE/IRBESARTAN [Concomitant]
     Dosage: UNK
     Dates: start: 20131220
  7. LOXONIN [Concomitant]
     Dosage: UNK
     Dates: start: 20131220
  8. MUCOSTA [Concomitant]
     Dosage: UNK

REACTIONS (1)
  - Drug reaction with eosinophilia and systemic symptoms [Recovered/Resolved]
